FAERS Safety Report 5223580-5 (Version None)
Quarter: 2007Q1

REPORT INFORMATION
  Report Type: 
  Country: None (occurrence: None)
  Receive Date: 20070125
  Receipt Date: 20070116
  Transmission Date: 20070707
  Serious: Yes (Hospitalization)
  Sender: FDA-Public Use
  Company Number: 2007-00182

PATIENT
  Age: 37 Year
  Sex: Male

DRUGS (2)
  1. FLUOROURACIL (WATSON LABORATORIES)(FLUOROURACIL) INJECTION, 50MG/ML [Suspect]
     Indication: GASTRIC CANCER
     Dosage: 2000 MG/M2, MONTHLY, INTRAVENOUS
     Route: 042
     Dates: start: 20040101, end: 20040801
  2. CISPLATIN [Suspect]
     Indication: GASTRIC CANCER
     Dosage: 50 MG/M2, MONTHLY, INTRAVENOUS
     Route: 042

REACTIONS (1)
  - REVERSIBLE POSTERIOR LEUKOENCEPHALOPATHY SYNDROME [None]
